FAERS Safety Report 5906984-4 (Version None)
Quarter: 2008Q4

REPORT INFORMATION
  Report Type: 
  Country: None (occurrence: None)
  Receive Date: 20081003
  Receipt Date: 20080910
  Transmission Date: 20090506
  Serious: Yes (Death, Hospitalization)
  Sender: FDA-Public Use
  Company Number: BR-RANBAXY-2008RR-17746

PATIENT

DRUGS (5)
  1. ZOLPIDEM RPG 10MG COMPRIME PELLICULE SECABLE [Suspect]
     Indication: INSOMNIA
     Dosage: 10 MG, UNK
  2. RIVASTIGMINE TARTRATE [Concomitant]
     Dosage: 12 MG, QD
  3. QUETIAPINE FUMARATE [Concomitant]
     Dosage: 12 MG, QD
  4. SPIRONOLACTONE [Concomitant]
     Indication: CRYPTOGENIC CIRRHOSIS
     Dosage: 100 MG, QD
  5. FUROSEMIDE [Concomitant]
     Indication: CRYPTOGENIC CIRRHOSIS
     Dosage: 40 MG, QD

REACTIONS (1)
  - HEPATIC ENCEPHALOPATHY [None]
